FAERS Safety Report 18114799 (Version 2)
Quarter: 2020Q3

REPORT INFORMATION
  Report Type: Spontaneous
  Country: US (occurrence: US)
  Receive Date: 20200805
  Receipt Date: 20200806
  Transmission Date: 20201103
  Serious: No
  Sender: FDA-Public Use
  Company Number: US-PFIZER INC-2020296216

PATIENT
  Age: 68 Year
  Sex: Female
  Weight: 56.25 kg

DRUGS (1)
  1. IBRANCE [Suspect]
     Active Substance: PALBOCICLIB
     Indication: BREAST CANCER FEMALE
     Dosage: 125 MG, CYCLIC (125MG 1 TABLET BY MOUTH DAILY FOR 21 DAYS)
     Route: 048

REACTIONS (3)
  - Arthritis [Unknown]
  - Product packaging difficult to open [Unknown]
  - Dysphonia [Unknown]
